FAERS Safety Report 25775734 (Version 4)
Quarter: 2025Q4

REPORT INFORMATION
  Report Type: Report from Study
  Country: MX (occurrence: MX)
  Receive Date: 20250909
  Receipt Date: 20251021
  Transmission Date: 20260117
  Serious: Yes (Other)
  Sender: NOVARTIS
  Company Number: MX-002147023-NVSC2025MX108053

PATIENT
  Age: 63 Year
  Sex: Female
  Weight: 47 kg

DRUGS (11)
  1. KISQALI [Suspect]
     Active Substance: RIBOCICLIB SUCCINATE
     Indication: Breast cancer
     Dosage: 600 MG
     Route: 048
     Dates: start: 202501, end: 202502
  2. KISQALI [Suspect]
     Active Substance: RIBOCICLIB SUCCINATE
     Dosage: 400 MG
     Route: 065
  3. KISQALI [Suspect]
     Active Substance: RIBOCICLIB SUCCINATE
     Dosage: 3 DOSAGE FORM, QD (3 OF 200 MG)
     Route: 048
     Dates: start: 202504, end: 202506
  4. KISQALI [Suspect]
     Active Substance: RIBOCICLIB SUCCINATE
     Dosage: 2 DOSAGE FORM (2 OF 200MG), QD
     Route: 048
     Dates: start: 202506
  5. KISQALI [Suspect]
     Active Substance: RIBOCICLIB SUCCINATE
     Dosage: 2 DOSAGE FORM (2 OF 200MG), QD
     Route: 048
  6. FULVESTRANT [Suspect]
     Active Substance: FULVESTRANT
     Indication: Breast cancer
     Dosage: 500 MG
     Route: 065
  7. FULVESTRANT [Suspect]
     Active Substance: FULVESTRANT
     Dosage: 2 DOSAGE FORM, QMO (2 OF 250MG/ 5ML)
     Route: 030
     Dates: start: 202501
  8. PROPRANOLOL [Concomitant]
     Active Substance: PROPRANOLOL HYDROCHLORIDE
     Indication: Hypertension
     Dosage: 0.5 DOSAGE FORM, QD (0.5 OF 40 MG) TABLETS
     Route: 048
     Dates: start: 2019
  9. PROPRANOLOL [Concomitant]
     Active Substance: PROPRANOLOL HYDROCHLORIDE
     Dosage: 0.5 MG, QD (20 MG)
     Route: 065
  10. LEVOTHYROXINE [Concomitant]
     Active Substance: LEVOTHYROXINE
     Indication: Hypothyroidism
     Dosage: 0.25 DOSAGE FORM, QD (0.25 OF 100 MG) (TABLETS)
     Route: 048
     Dates: start: 2019
  11. DENOSUMAB [Concomitant]
     Active Substance: DENOSUMAB
     Indication: Bone disorder
     Dosage: UNK (INJECTABLE SOLUTION)
     Route: 058
     Dates: start: 202501

REACTIONS (28)
  - Syncope [Unknown]
  - Acne [Recovered/Resolved]
  - Dermatitis allergic [Recovering/Resolving]
  - Headache [Not Recovered/Not Resolved]
  - Abdominal discomfort [Not Recovered/Not Resolved]
  - Product availability issue [Unknown]
  - Urticaria [Recovered/Resolved]
  - Dizziness [Not Recovered/Not Resolved]
  - Sensitive skin [Recovered/Resolved]
  - Vulvovaginal dryness [Unknown]
  - Ear dryness [Unknown]
  - Dry throat [Unknown]
  - Feeling abnormal [Unknown]
  - Gastric infection [Unknown]
  - Urticaria [Unknown]
  - White blood cell count decreased [Not Recovered/Not Resolved]
  - Dyspnoea [Not Recovered/Not Resolved]
  - Ear pruritus [Not Recovered/Not Resolved]
  - Lacrimation increased [Not Recovered/Not Resolved]
  - Oesophageal pain [Not Recovered/Not Resolved]
  - Chest pain [Not Recovered/Not Resolved]
  - Tachycardia [Unknown]
  - Blood pressure decreased [Recovered/Resolved]
  - Mucosal dryness [Not Recovered/Not Resolved]
  - Nausea [Not Recovered/Not Resolved]
  - Decreased appetite [Recovered/Resolved]
  - Ulcer [Not Recovered/Not Resolved]
  - Weight increased [Not Recovered/Not Resolved]

NARRATIVE: CASE EVENT DATE: 20250101
